FAERS Safety Report 10043231 (Version 1)
Quarter: 2014Q1

REPORT INFORMATION
  Report Type: Spontaneous
  Country: US (occurrence: None)
  Receive Date: 20140327
  Receipt Date: 20140327
  Transmission Date: 20141002
  Serious: Yes (Other)
  Sender: FDA-Public Use
  Company Number: None

PATIENT
  Age: 52 Year
  Sex: Female
  Weight: 113.4 kg

DRUGS (10)
  1. GABAPENTIN [Suspect]
     Indication: NEUROPATHY PERIPHERAL
     Route: 048
     Dates: start: 20140324, end: 20140324
  2. PAROXETINE [Suspect]
  3. GLIPIZIDE [Suspect]
  4. METFORMIN [Suspect]
  5. LEVOTHYROXINE [Suspect]
  6. METOPROLOL [Suspect]
  7. XANAX [Suspect]
  8. DOXEPIN [Suspect]
  9. WELLBUTRIN [Suspect]
  10. GABAPENTIN [Suspect]

REACTIONS (3)
  - Dizziness [None]
  - Disturbance in attention [None]
  - Product packaging quantity issue [None]
